FAERS Safety Report 9486334 (Version 1)
Quarter: 2013Q3

REPORT INFORMATION
  Report Type: Spontaneous
  Country: US (occurrence: US)
  Receive Date: 20130829
  Receipt Date: 20130829
  Transmission Date: 20140515
  Serious: Yes (Hospitalization)
  Sender: FDA-Public Use
  Company Number: US-PFIZER INC-2013248495

PATIENT
  Age: 77 Year
  Sex: Female
  Weight: 47.17 kg

DRUGS (3)
  1. NORVASC [Suspect]
     Indication: HYPERTENSION
     Dosage: 2.5 MG, 1X/DAY
     Dates: start: 20130717
  2. CARDURA [Suspect]
  3. CARDIZEM [Concomitant]
     Indication: HYPERTENSION
     Dosage: 60 MG, 2X/DAY

REACTIONS (5)
  - Chest pain [Not Recovered/Not Resolved]
  - Dyspnoea [Not Recovered/Not Resolved]
  - Drug ineffective [Not Recovered/Not Resolved]
  - Feeling abnormal [Unknown]
  - Weight decreased [Unknown]
